FAERS Safety Report 9722470 (Version 1)
Quarter: 2013Q4

REPORT INFORMATION
  Report Type: Spontaneous
  Country: US (occurrence: None)
  Receive Date: 20131127
  Receipt Date: 20131127
  Transmission Date: 20140711
  Serious: Yes (Other)
  Sender: FDA-Public Use
  Company Number: None

PATIENT
  Age: 35 Year
  Sex: Female

DRUGS (1)
  1. MAKENA [Suspect]
     Dosage: Q WKLY..,OCT 11TH -NOV. 13TH.
     Route: 030

REACTIONS (5)
  - Rash [None]
  - Pruritus [None]
  - Arthralgia [None]
  - Pregnancy [None]
  - Exposure during pregnancy [None]
